FAERS Safety Report 5689530-2 (Version None)
Quarter: 2008Q1

REPORT INFORMATION
  Report Type: 
  Country: None (occurrence: None)
  Receive Date: 20080331
  Receipt Date: 20080319
  Transmission Date: 20080703
  Serious: Yes (Other)
  Sender: FDA-Public Use
  Company Number: BE-PFIZER INC-2008026675

PATIENT
  Sex: Female

DRUGS (9)
  1. CHAMPIX [Suspect]
     Indication: SMOKING CESSATION THERAPY
     Route: 048
     Dates: start: 20071018, end: 20080228
  2. DROSPIRENONE/ESTRADIOL HEMIHYDRATE [Concomitant]
  3. CYMBALTA [Concomitant]
  4. NEXIUM [Concomitant]
  5. TEMESTA [Concomitant]
  6. TRAMADOL HCL [Concomitant]
  7. XANAX [Concomitant]
  8. ZOLPIDEM [Concomitant]
  9. NICORETTE [Concomitant]

REACTIONS (2)
  - DEPRESSION [None]
  - SUICIDAL IDEATION [None]
